FAERS Safety Report 6024615-2 (Version None)
Quarter: 2008Q4

REPORT INFORMATION
  Report Type: 
  Country: None (occurrence: None)
  Receive Date: 20081231
  Receipt Date: 20081219
  Transmission Date: 20090506
  Serious: Yes (Hospitalization, Disabling)
  Sender: FDA-Public Use
  Company Number: GB-PFIZER INC-2008078671

PATIENT

DRUGS (12)
  1. BLINDED *PLACEBO [Suspect]
     Dosage: DAILY EVERY DAY
     Route: 048
     Dates: start: 20080816
  2. BLINDED SUNITINIB MALATE [Suspect]
     Dosage: DAILY EVERY DAY
     Route: 048
     Dates: start: 20080816
  3. *ERLOTINIB [Suspect]
     Dosage: DAILY EVERY DAY
     Route: 048
     Dates: start: 20080816
  4. DICLOFENAC [Suspect]
     Dates: end: 20080915
  5. CLEXANE [Concomitant]
     Route: 058
  6. AMITRIPTYLINE [Concomitant]
     Route: 048
  7. ACETAMINOPHEN W/ CODEINE [Concomitant]
     Route: 048
  8. FLUOXETINE [Concomitant]
     Route: 048
  9. ZOLPIDEM [Concomitant]
     Route: 048
  10. AMOXICILLIN + CLAVULANATE POTASSIUM [Concomitant]
     Route: 048
     Dates: start: 20080829, end: 20080902
  11. TRAMADOL [Concomitant]
     Route: 048
  12. OMEPRAZOLE [Concomitant]
     Route: 048

REACTIONS (5)
  - DIARRHOEA [None]
  - HAEMORRHAGE [None]
  - MUSCULOSKELETAL PAIN [None]
  - OESOPHAGITIS [None]
  - VOMITING [None]
